FAERS Safety Report 16696846 (Version 1)
Quarter: 2019Q3

REPORT INFORMATION
  Report Type: Spontaneous
  Country: IT (occurrence: IT)
  Receive Date: 20190813
  Receipt Date: 20190813
  Transmission Date: 20191004
  Serious: Yes (Life-Threatening, Hospitalization)
  Sender: FDA-Public Use
  Company Number: IT-CELGENEUS-ITA-20190802066

PATIENT
  Age: 75 Year
  Sex: Female
  Weight: 65 kg

DRUGS (1)
  1. REVLIMID [Suspect]
     Active Substance: LENALIDOMIDE
     Indication: PLASMA CELL MYELOMA
     Route: 048
     Dates: start: 20190408, end: 20190517

REACTIONS (4)
  - Rash generalised [Unknown]
  - Toxic skin eruption [Unknown]
  - Stevens-Johnson syndrome [Unknown]
  - Skin lesion [Unknown]

NARRATIVE: CASE EVENT DATE: 20190510
